FAERS Safety Report 17853741 (Version 1)
Quarter: 2020Q2

REPORT INFORMATION
  Report Type: Spontaneous
  Country: JP (occurrence: JP)
  Receive Date: 20200603
  Receipt Date: 20200603
  Transmission Date: 20200714
  Serious: Yes (Other)
  Sender: FDA-Public Use
  Company Number: JP-AMGEN-JPNSP2020085579

PATIENT
  Age: 32 Year
  Sex: Male
  Weight: 68.1 kg

DRUGS (14)
  1. NESP [Concomitant]
     Active Substance: DARBEPOETIN ALFA
     Dosage: 30 MICROGRAM, QWK
     Route: 065
     Dates: end: 20180706
  2. P-TOL [SUCROFERRIC OXYHYDROXIDE] [Concomitant]
     Dosage: 750 MILLIGRAM, QD
     Route: 065
     Dates: end: 20180822
  3. P-TOL [SUCROFERRIC OXYHYDROXIDE] [Concomitant]
     Dosage: 1500 MILLIGRAM, QD
     Route: 065
     Dates: start: 20180823, end: 20181116
  4. KIKLIN [Concomitant]
     Active Substance: BIXALOMER
     Dosage: 2250 MILLIGRAM, QD
     Route: 048
  5. OXAROL [Concomitant]
     Active Substance: MAXACALCITOL
     Dosage: 7.5 MICROGRAM, 3 TIMES/WK
     Route: 065
     Dates: start: 20180525, end: 20180606
  6. OXAROL [Concomitant]
     Active Substance: MAXACALCITOL
     Dosage: 5 MICROGRAM, QWK
     Route: 065
     Dates: start: 20180608
  7. PARSABIV [Suspect]
     Active Substance: ETELCALCETIDE HYDROCHLORIDE
     Indication: HYPERPARATHYROIDISM SECONDARY
     Dosage: 5 MILLIGRAM, 3 TIMES/WK
     Route: 010
     Dates: start: 20180727
  8. OXAROL [Concomitant]
     Active Substance: MAXACALCITOL
     Dosage: 7.5 MICROGRAM, 2 TIMES/WK
     Route: 065
     Dates: start: 20180227, end: 20180523
  9. OXAROL [Concomitant]
     Active Substance: MAXACALCITOL
     Dosage: 10 MICROGRAM, QWK
     Route: 065
     Dates: start: 20180227, end: 20180523
  10. P-TOL [SUCROFERRIC OXYHYDROXIDE] [Concomitant]
     Dosage: 750 MILLIGRAM, QD
     Route: 065
     Dates: start: 20181117
  11. NESP [Concomitant]
     Active Substance: DARBEPOETIN ALFA
     Dosage: 15 MICROGRAM, QWK
     Route: 065
     Dates: start: 20180810, end: 20180907
  12. NESP [Concomitant]
     Active Substance: DARBEPOETIN ALFA
     Dosage: 20 MICROGRAM, QWK
     Route: 065
     Dates: start: 20180914
  13. NESP [Concomitant]
     Active Substance: DARBEPOETIN ALFA
     Dosage: 20 MICROGRAM, QWK
     Route: 065
     Dates: start: 20180713, end: 20180803
  14. OXAROL [Concomitant]
     Active Substance: MAXACALCITOL
     Dosage: 7.5 MICROGRAM, 2 TIMES/WK
     Route: 065
     Dates: start: 20180608

REACTIONS (1)
  - Shunt occlusion [Recovered/Resolved]

NARRATIVE: CASE EVENT DATE: 20190719
